FAERS Safety Report 6667937-4 (Version None)
Quarter: 2010Q2

REPORT INFORMATION
  Report Type: 
  Country: None (occurrence: None)
  Receive Date: 20100405
  Receipt Date: 20100326
  Transmission Date: 20101027
  Serious: Yes (Hospitalization)
  Sender: FDA-Public Use
  Company Number: DE-ABBOTT-09P-062-0587991-00

PATIENT
  Age: 51 Year
  Sex: Male

DRUGS (4)
  1. HUMIRA [Suspect]
     Indication: POLYARTHRITIS
     Route: 058
     Dates: start: 20031001, end: 20080101
  2. HUMIRA [Suspect]
     Dates: start: 20080721
  3. METHOTREXATE [Suspect]
     Indication: POLYARTHRITIS
     Dates: start: 20031001, end: 20080101
  4. METHOTREXATE [Suspect]
     Dates: start: 20080421

REACTIONS (2)
  - BURSITIS INFECTIVE [None]
  - HIP ARTHROPLASTY [None]
